FAERS Safety Report 14204131 (Version 1)
Quarter: 2017Q4

REPORT INFORMATION
  Report Type: Spontaneous
  Country: US (occurrence: US)
  Receive Date: 20171117
  Receipt Date: 20171117
  Transmission Date: 20180321
  Serious: No
  Sender: FDA-Public Use
  Company Number: None

PATIENT
  Age: 40 Year
  Sex: Male
  Weight: 112.5 kg

DRUGS (1)
  1. METHYLPHENIDATE ER 54MG TAB [Suspect]
     Active Substance: METHYLPHENIDATE HYDROCHLORIDE
     Indication: ATTENTION DEFICIT/HYPERACTIVITY DISORDER
     Dosage: ?          QUANTITY:1 CAPSULE(S);?
     Route: 048
     Dates: start: 20171019, end: 20171117

REACTIONS (7)
  - Depression [None]
  - Product size issue [None]
  - Drug effect decreased [None]
  - Product substitution issue [None]
  - Foreign body in respiratory tract [None]
  - Attention deficit/hyperactivity disorder [None]
  - Therapeutic response changed [None]

NARRATIVE: CASE EVENT DATE: 20171027
